FAERS Safety Report 8020023-3 (Version None)
Quarter: 2012Q1

REPORT INFORMATION
  Report Type: 
  Country: None (occurrence: None)
  Receive Date: 20120103
  Receipt Date: 20111220
  Transmission Date: 20120608
  Serious: Yes (Hospitalization, Other)
  Sender: FDA-Public Use
  Company Number: PHHY2011JP111343

PATIENT
  Age: 29 Year
  Sex: Female

DRUGS (5)
  1. CYCLOSPORINE [Suspect]
     Indication: SYSTEMIC LUPUS ERYTHEMATOSUS
  2. TACROLIMUS [Suspect]
     Indication: SYSTEMIC LUPUS ERYTHEMATOSUS
  3. MIZORIBINE [Suspect]
  4. AZATHIOPRINE [Suspect]
     Indication: SYSTEMIC LUPUS ERYTHEMATOSUS
  5. CORTICOSTEROID NOS [Concomitant]
     Indication: SYSTEMIC LUPUS ERYTHEMATOSUS
     Route: 048

REACTIONS (5)
  - NEUROPSYCHIATRIC LUPUS [None]
  - THROMBOTIC THROMBOCYTOPENIC PURPURA [None]
  - PANCYTOPENIA [None]
  - LUPUS NEPHRITIS [None]
  - LIVER DISORDER [None]
